FAERS Safety Report 14117163 (Version 1)
Quarter: 2017Q4

REPORT INFORMATION
  Report Type: Spontaneous
  Country: US (occurrence: US)
  Receive Date: 20171023
  Receipt Date: 20171023
  Transmission Date: 20180321
  Serious: Yes (Other)
  Sender: FDA-Public Use
  Company Number: US-AMGEN-USASP2017158034

PATIENT
  Age: 84 Year
  Sex: Female

DRUGS (2)
  1. PROLIA [Suspect]
     Active Substance: DENOSUMAB
     Indication: OSTEOPOROSIS POSTMENOPAUSAL
     Dosage: 60 MG, Q6MO
     Route: 058
     Dates: start: 2015
  2. CALCIUM PLUS D3 [Concomitant]

REACTIONS (4)
  - Pain in extremity [Unknown]
  - Back pain [Recovered/Resolved]
  - Cystitis [Unknown]
  - Dental caries [Unknown]

NARRATIVE: CASE EVENT DATE: 201702
